FAERS Safety Report 19378658 (Version 8)
Quarter: 2022Q4

REPORT INFORMATION
  Report Type: Spontaneous
  Country: CA (occurrence: CA)
  Receive Date: 20210606
  Receipt Date: 20221229
  Transmission Date: 20230113
  Serious: Yes (Hospitalization, Other)
  Sender: FDA-Public Use
  Company Number: None

PATIENT
  Age: 77 Year
  Sex: Female

DRUGS (382)
  1. DILTIAZEM HYDROCHLORIDE [Interacting]
     Active Substance: DILTIAZEM HYDROCHLORIDE
     Indication: Coronary artery disease
     Dosage: 360 MG, QD (INTRAVENOUS, LIQUID)
     Route: 065
  2. DILTIAZEM HYDROCHLORIDE [Interacting]
     Active Substance: DILTIAZEM HYDROCHLORIDE
     Indication: Hypertension
     Dosage: 15 MG, QD
     Route: 065
  3. DILTIAZEM HYDROCHLORIDE [Interacting]
     Active Substance: DILTIAZEM HYDROCHLORIDE
     Indication: Chest pain
     Dosage: 36 MG, QD
     Route: 065
  4. DILTIAZEM HYDROCHLORIDE [Interacting]
     Active Substance: DILTIAZEM HYDROCHLORIDE
     Indication: Angina pectoris
     Dosage: UNK
     Route: 042
  5. DILTIAZEM HYDROCHLORIDE [Interacting]
     Active Substance: DILTIAZEM HYDROCHLORIDE
     Dosage: 360 MG, QD
     Route: 065
  6. DILTIAZEM HYDROCHLORIDE [Interacting]
     Active Substance: DILTIAZEM HYDROCHLORIDE
     Dosage: UNK
     Route: 065
  7. DILTIAZEM HYDROCHLORIDE [Interacting]
     Active Substance: DILTIAZEM HYDROCHLORIDE
     Dosage: UNK
     Route: 065
  8. DILTIAZEM HYDROCHLORIDE [Interacting]
     Active Substance: DILTIAZEM HYDROCHLORIDE
     Dosage: 360 MG, QD
     Route: 065
  9. DILTIAZEM HYDROCHLORIDE [Interacting]
     Active Substance: DILTIAZEM HYDROCHLORIDE
     Dosage: 369 MG, QD
     Route: 065
  10. DILTIAZEM HYDROCHLORIDE [Interacting]
     Active Substance: DILTIAZEM HYDROCHLORIDE
     Dosage: UNK
     Route: 065
  11. DILTIAZEM HYDROCHLORIDE [Interacting]
     Active Substance: DILTIAZEM HYDROCHLORIDE
     Dosage: 360MG, QD
     Route: 065
  12. DILTIAZEM HYDROCHLORIDE [Interacting]
     Active Substance: DILTIAZEM HYDROCHLORIDE
     Dosage: 360 MG, QD
     Route: 065
  13. DILTIAZEM HYDROCHLORIDE [Interacting]
     Active Substance: DILTIAZEM HYDROCHLORIDE
     Dosage: UNK
     Route: 065
  14. DILTIAZEM HYDROCHLORIDE [Interacting]
     Active Substance: DILTIAZEM HYDROCHLORIDE
     Dosage: 360 MG, QD
     Route: 065
  15. DILTIAZEM HYDROCHLORIDE [Interacting]
     Active Substance: DILTIAZEM HYDROCHLORIDE
     Dosage: UNK
     Route: 065
  16. DILTIAZEM HYDROCHLORIDE [Interacting]
     Active Substance: DILTIAZEM HYDROCHLORIDE
     Dosage: 360MG, QD
     Route: 065
  17. DILTIAZEM HYDROCHLORIDE [Interacting]
     Active Substance: DILTIAZEM HYDROCHLORIDE
     Dosage: UNK
     Route: 065
  18. DILTIAZEM HYDROCHLORIDE [Interacting]
     Active Substance: DILTIAZEM HYDROCHLORIDE
     Dosage: UNK
     Route: 065
  19. DILTIAZEM HYDROCHLORIDE [Interacting]
     Active Substance: DILTIAZEM HYDROCHLORIDE
     Dosage: 15 MG, QD
     Route: 065
  20. DILTIAZEM HYDROCHLORIDE [Interacting]
     Active Substance: DILTIAZEM HYDROCHLORIDE
     Dosage: 36 MG, QD
     Route: 065
  21. DILTIAZEM HYDROCHLORIDE [Interacting]
     Active Substance: DILTIAZEM HYDROCHLORIDE
     Dosage: UNK
     Route: 065
  22. DILTIAZEM HYDROCHLORIDE [Interacting]
     Active Substance: DILTIAZEM HYDROCHLORIDE
     Dosage: 360 MG, QD
     Route: 065
  23. DILTIAZEM HYDROCHLORIDE [Interacting]
     Active Substance: DILTIAZEM HYDROCHLORIDE
     Dosage: UNK
     Route: 065
  24. LEVOTHYROXINE SODIUM [Interacting]
     Active Substance: LEVOTHYROXINE SODIUM
     Indication: Thyroid disorder
     Dosage: 0.09 MG, QD
     Route: 065
  25. LEVOTHYROXINE SODIUM [Interacting]
     Active Substance: LEVOTHYROXINE SODIUM
     Indication: Radioactive iodine therapy
     Dosage: 0.8 MG, QD
     Route: 065
  26. LEVOTHYROXINE SODIUM [Interacting]
     Active Substance: LEVOTHYROXINE SODIUM
     Dosage: 0.88 MG, QD
     Route: 065
  27. GLUCOSAMINE [Interacting]
     Active Substance: GLUCOSAMINE
     Indication: Pain
     Dosage: 500 MG (ONCE EVERY 5 DAYS)
     Route: 065
  28. GLUCOSAMINE [Interacting]
     Active Substance: GLUCOSAMINE
     Indication: Arthritis
     Dosage: 500 MG, Q12H
     Route: 065
  29. GLUCOSAMINE [Interacting]
     Active Substance: GLUCOSAMINE
     Dosage: 500 MG, QH
     Route: 065
  30. AMITRIPTYLINE HYDROCHLORIDE [Interacting]
     Active Substance: AMITRIPTYLINE HYDROCHLORIDE
     Indication: Angina pectoris
     Dosage: 50 MG, QD
     Route: 065
  31. AMITRIPTYLINE HYDROCHLORIDE [Interacting]
     Active Substance: AMITRIPTYLINE HYDROCHLORIDE
     Indication: Hypertension
     Dosage: 50 MG, QD
     Route: 065
  32. AMITRIPTYLINE HYDROCHLORIDE [Interacting]
     Active Substance: AMITRIPTYLINE HYDROCHLORIDE
     Indication: Arthritis
     Dosage: 75 MG, QD
     Route: 065
  33. AMITRIPTYLINE HYDROCHLORIDE [Interacting]
     Active Substance: AMITRIPTYLINE HYDROCHLORIDE
     Indication: Constipation
     Dosage: UNK
     Route: 065
  34. AMITRIPTYLINE HYDROCHLORIDE [Interacting]
     Active Substance: AMITRIPTYLINE HYDROCHLORIDE
     Indication: Radioactive iodine therapy
     Dosage: UNK
     Route: 065
  35. AMITRIPTYLINE HYDROCHLORIDE [Interacting]
     Active Substance: AMITRIPTYLINE HYDROCHLORIDE
     Indication: Fibromyalgia
     Dosage: UNK
     Route: 065
  36. AMITRIPTYLINE HYDROCHLORIDE [Interacting]
     Active Substance: AMITRIPTYLINE HYDROCHLORIDE
     Indication: Coronary artery disease
     Dosage: UNK
     Route: 065
  37. AMITRIPTYLINE HYDROCHLORIDE [Interacting]
     Active Substance: AMITRIPTYLINE HYDROCHLORIDE
     Indication: Dementia
     Dosage: UNK
     Route: 065
  38. AMITRIPTYLINE HYDROCHLORIDE [Interacting]
     Active Substance: AMITRIPTYLINE HYDROCHLORIDE
     Indication: Duodenal ulcer
     Dosage: UNK
     Route: 065
  39. AMITRIPTYLINE HYDROCHLORIDE [Interacting]
     Active Substance: AMITRIPTYLINE HYDROCHLORIDE
     Indication: Prophylaxis
     Dosage: UNK
     Route: 065
  40. AMITRIPTYLINE HYDROCHLORIDE [Interacting]
     Active Substance: AMITRIPTYLINE HYDROCHLORIDE
     Indication: Insomnia
     Dosage: UNK
     Route: 065
  41. AMITRIPTYLINE HYDROCHLORIDE [Interacting]
     Active Substance: AMITRIPTYLINE HYDROCHLORIDE
     Indication: Thyroid disorder
     Dosage: UNK
     Route: 065
  42. AMITRIPTYLINE HYDROCHLORIDE [Interacting]
     Active Substance: AMITRIPTYLINE HYDROCHLORIDE
     Indication: Oedema
     Dosage: UNK
     Route: 065
  43. AMITRIPTYLINE HYDROCHLORIDE [Interacting]
     Active Substance: AMITRIPTYLINE HYDROCHLORIDE
     Indication: Chest pain
     Dosage: UNK
     Route: 065
  44. AMITRIPTYLINE HYDROCHLORIDE [Interacting]
     Active Substance: AMITRIPTYLINE HYDROCHLORIDE
     Indication: Pain
  45. OXAZEPAM [Interacting]
     Active Substance: OXAZEPAM
     Indication: Insomnia
     Dosage: 15 MG, QD
     Route: 048
  46. OXAZEPAM [Interacting]
     Active Substance: OXAZEPAM
     Indication: Hypertension
     Dosage: 40 MG, QD
     Route: 065
  47. OXAZEPAM [Interacting]
     Active Substance: OXAZEPAM
     Indication: Coronary artery disease
     Dosage: 20 MG, QD
     Route: 048
  48. OXAZEPAM [Interacting]
     Active Substance: OXAZEPAM
     Indication: Angina pectoris
     Dosage: UNK
     Route: 065
  49. OXAZEPAM [Interacting]
     Active Substance: OXAZEPAM
     Indication: Cerebrovascular accident
  50. MORPHINE SULFATE [Interacting]
     Active Substance: MORPHINE SULFATE
     Indication: Pain
     Dosage: 10 MG, QD
     Route: 065
  51. MORPHINE SULFATE [Interacting]
     Active Substance: MORPHINE SULFATE
     Indication: Fibromyalgia
     Dosage: 1 DF, QD
     Route: 065
  52. MORPHINE SULFATE [Interacting]
     Active Substance: MORPHINE SULFATE
     Dosage: 2 DF, QD
     Route: 065
  53. MORPHINE SULFATE [Interacting]
     Active Substance: MORPHINE SULFATE
     Dosage: 2 DOSAGE FORM, QD
     Route: 065
  54. MORPHINE SULFATE [Interacting]
     Active Substance: MORPHINE SULFATE
     Dosage: 1 DOSAGE FORM, QD
     Route: 065
  55. MORPHINE SULFATE [Interacting]
     Active Substance: MORPHINE SULFATE
     Dosage: UNK
     Route: 030
  56. MORPHINE SULFATE [Interacting]
     Active Substance: MORPHINE SULFATE
     Dosage: 2 DOSAGE FORM, QD
     Route: 065
  57. MORPHINE SULFATE [Interacting]
     Active Substance: MORPHINE SULFATE
     Dosage: UNK
     Route: 065
  58. MORPHINE SULFATE [Interacting]
     Active Substance: MORPHINE SULFATE
     Dosage: UNK
     Route: 065
  59. MORPHINE SULFATE [Interacting]
     Active Substance: MORPHINE SULFATE
     Dosage: 10 MG, QD
     Route: 065
  60. MORPHINE SULFATE [Interacting]
     Active Substance: MORPHINE SULFATE
     Dosage: 10 MG, QD
     Route: 065
  61. MORPHINE SULFATE [Interacting]
     Active Substance: MORPHINE SULFATE
     Dosage: 10 MG, QD
     Route: 065
  62. MORPHINE SULFATE [Interacting]
     Active Substance: MORPHINE SULFATE
     Dosage: 100 MG, QD
     Route: 065
  63. MORPHINE SULFATE [Interacting]
     Active Substance: MORPHINE SULFATE
     Dosage: UNK
     Route: 065
  64. OMEPRAZOLE [Interacting]
     Active Substance: OMEPRAZOLE
     Indication: Duodenal ulcer
     Dosage: 20 MG, QD
     Route: 048
  65. OMEPRAZOLE [Interacting]
     Active Substance: OMEPRAZOLE
     Indication: Small intestine carcinoma
     Dosage: 20 MG, QD
     Route: 048
  66. OMEPRAZOLE [Interacting]
     Active Substance: OMEPRAZOLE
     Indication: Chest pain
     Dosage: 20 MG, QD
     Route: 065
  67. OMEPRAZOLE [Interacting]
     Active Substance: OMEPRAZOLE
     Indication: Angina pectoris
     Dosage: 20 MG, Q12H
     Route: 048
  68. OMEPRAZOLE [Interacting]
     Active Substance: OMEPRAZOLE
     Indication: Hypertension
     Dosage: 20 MG, QD
     Route: 048
  69. OMEPRAZOLE [Interacting]
     Active Substance: OMEPRAZOLE
     Indication: Coronary artery disease
     Dosage: 20 MG, QD
     Route: 048
  70. OXCARBAZEPINE [Interacting]
     Active Substance: OXCARBAZEPINE
     Indication: Product used for unknown indication
     Dosage: UNK
     Route: 065
  71. FUROSEMIDE [Interacting]
     Active Substance: FUROSEMIDE
     Indication: Oedema
     Dosage: 40 MG, QD
     Route: 061
  72. FUROSEMIDE [Interacting]
     Active Substance: FUROSEMIDE
     Indication: Coronary artery disease
     Dosage: 4 MG, QD
     Route: 065
  73. FUROSEMIDE [Interacting]
     Active Substance: FUROSEMIDE
     Indication: Chest pain
     Dosage: 40 MG, QD
     Route: 065
  74. FUROSEMIDE [Interacting]
     Active Substance: FUROSEMIDE
     Indication: Angina pectoris
     Dosage: 40 MG, QD
     Route: 065
  75. FUROSEMIDE [Interacting]
     Active Substance: FUROSEMIDE
     Dosage: 4 MG, QD
     Route: 065
  76. FUROSEMIDE [Interacting]
     Active Substance: FUROSEMIDE
     Dosage: 40 MG, QD
     Route: 065
  77. FUROSEMIDE [Interacting]
     Active Substance: FUROSEMIDE
     Dosage: 4 MG, QD
     Route: 065
  78. FUROSEMIDE [Interacting]
     Active Substance: FUROSEMIDE
     Dosage: 40 MG, QD
     Route: 065
  79. AMLODIPINE BESYLATE [Interacting]
     Active Substance: AMLODIPINE BESYLATE
     Indication: Constipation
     Dosage: UNK (TOTAL)
     Route: 065
  80. AMLODIPINE BESYLATE [Interacting]
     Active Substance: AMLODIPINE BESYLATE
     Indication: Coronary artery disease
     Dosage: 5 MG, QD
     Route: 065
  81. AMLODIPINE BESYLATE [Interacting]
     Active Substance: AMLODIPINE BESYLATE
     Indication: Angina pectoris
     Dosage: UNK
     Route: 065
  82. AMLODIPINE BESYLATE [Interacting]
     Active Substance: AMLODIPINE BESYLATE
     Indication: Hypertension
     Dosage: UNK
     Route: 065
  83. GALANTAMINE HYDROBROMIDE [Interacting]
     Active Substance: GALANTAMINE HYDROBROMIDE
     Indication: Dementia
     Dosage: 16 MG, QD
     Route: 065
  84. CARBAMAZEPINE [Interacting]
     Active Substance: CARBAMAZEPINE
     Indication: Seizure
     Dosage: 200 MG, Q12H
     Route: 065
  85. CARBAMAZEPINE [Interacting]
     Active Substance: CARBAMAZEPINE
     Indication: Seizure prophylaxis
     Dosage: 200 MG, Q48H
     Route: 065
  86. CARBAMAZEPINE [Interacting]
     Active Substance: CARBAMAZEPINE
     Indication: Fibromyalgia
     Dosage: 100 MG, Q12H
     Route: 065
  87. CARBAMAZEPINE [Interacting]
     Active Substance: CARBAMAZEPINE
     Dosage: 2 DF, QD
     Route: 065
  88. CARBAMAZEPINE [Interacting]
     Active Substance: CARBAMAZEPINE
     Dosage: 400 MG, Q12H
     Route: 065
  89. CARBAMAZEPINE [Interacting]
     Active Substance: CARBAMAZEPINE
     Dosage: 100 MG, BID
     Route: 065
  90. CARBAMAZEPINE [Interacting]
     Active Substance: CARBAMAZEPINE
     Dosage: 200 MG, BID
     Route: 065
  91. CARBAMAZEPINE [Interacting]
     Active Substance: CARBAMAZEPINE
     Dosage: 2 DOSAGE FORM, Q12H
     Route: 065
  92. CARBAMAZEPINE [Interacting]
     Active Substance: CARBAMAZEPINE
     Dosage: 400 MG, Q12H
     Route: 065
  93. CARBAMAZEPINE [Interacting]
     Active Substance: CARBAMAZEPINE
     Dosage: 200 MG, Q12H
     Route: 065
  94. CARBAMAZEPINE [Interacting]
     Active Substance: CARBAMAZEPINE
     Dosage: 100 MG
     Route: 065
  95. CARBAMAZEPINE [Interacting]
     Active Substance: CARBAMAZEPINE
     Dosage: 2 DOSAGE FORM, QD
     Route: 065
  96. CARBAMAZEPINE [Interacting]
     Active Substance: CARBAMAZEPINE
     Dosage: 1 DOSAGE FORM, QD
     Route: 065
  97. CARBAMAZEPINE [Interacting]
     Active Substance: CARBAMAZEPINE
     Dosage: 200 MG
     Route: 065
  98. CARBAMAZEPINE [Interacting]
     Active Substance: CARBAMAZEPINE
     Dosage: 1 DOSAGE FORM, Q12H
     Route: 065
  99. CARBAMAZEPINE [Interacting]
     Active Substance: CARBAMAZEPINE
     Dosage: 200 MG, Q12H
     Route: 065
  100. CARBAMAZEPINE [Interacting]
     Active Substance: CARBAMAZEPINE
     Dosage: 100 MG, Q12H
     Route: 065
  101. AMLODIPINE [Interacting]
     Active Substance: AMLODIPINE BESYLATE
     Indication: Hypertension
     Dosage: UNK
     Route: 065
  102. AMLODIPINE [Interacting]
     Active Substance: AMLODIPINE BESYLATE
     Indication: Coronary artery disease
     Dosage: 50 MG, QD
     Route: 065
  103. AMLODIPINE [Interacting]
     Active Substance: AMLODIPINE BESYLATE
     Indication: Chest pain
     Dosage: 5 MG, QD
     Route: 065
  104. AMLODIPINE [Interacting]
     Active Substance: AMLODIPINE BESYLATE
     Indication: Angina pectoris
     Dosage: UNK
     Route: 065
  105. AMLODIPINE [Interacting]
     Active Substance: AMLODIPINE BESYLATE
     Indication: Constipation
     Dosage: UNK
     Route: 065
  106. AMLODIPINE [Interacting]
     Active Substance: AMLODIPINE BESYLATE
     Dosage: 5 MG, QD
     Route: 065
  107. AMLODIPINE [Interacting]
     Active Substance: AMLODIPINE BESYLATE
     Dosage: UNK
     Route: 065
  108. AMLODIPINE [Interacting]
     Active Substance: AMLODIPINE BESYLATE
     Dosage: UNK
     Route: 065
  109. AMLODIPINE [Interacting]
     Active Substance: AMLODIPINE BESYLATE
     Dosage: UNK
     Route: 065
  110. AMLODIPINE [Interacting]
     Active Substance: AMLODIPINE BESYLATE
     Dosage: UNK
     Route: 065
  111. AMLODIPINE [Interacting]
     Active Substance: AMLODIPINE BESYLATE
     Dosage: UNK
     Route: 065
  112. AMLODIPINE [Interacting]
     Active Substance: AMLODIPINE BESYLATE
     Dosage: 5 MG, QD
     Route: 065
  113. AMLODIPINE [Interacting]
     Active Substance: AMLODIPINE BESYLATE
     Dosage: 50 MG, QD
     Route: 065
  114. AMLODIPINE [Interacting]
     Active Substance: AMLODIPINE BESYLATE
     Dosage: UNK
     Route: 065
  115. AMLODIPINE [Interacting]
     Active Substance: AMLODIPINE BESYLATE
     Dosage: UNK
     Route: 065
  116. AMLODIPINE [Interacting]
     Active Substance: AMLODIPINE BESYLATE
     Dosage: UNK
     Route: 065
  117. AMLODIPINE [Interacting]
     Active Substance: AMLODIPINE BESYLATE
     Dosage: 5 MG, QD
     Route: 065
  118. AMLODIPINE [Interacting]
     Active Substance: AMLODIPINE BESYLATE
     Dosage: 5 MG, QD
     Route: 065
  119. AMLODIPINE [Interacting]
     Active Substance: AMLODIPINE BESYLATE
     Dosage: UNK
     Route: 065
  120. DIPYRIDAMOLE [Interacting]
     Active Substance: DIPYRIDAMOLE
     Indication: Cerebrovascular accident
     Dosage: 2 DF, QD
     Route: 065
  121. DIPYRIDAMOLE [Interacting]
     Active Substance: DIPYRIDAMOLE
     Dosage: 0.5 DF, QD
     Route: 065
  122. DIPYRIDAMOLE [Interacting]
     Active Substance: DIPYRIDAMOLE
     Dosage: 2 DF, QOD
     Route: 065
  123. DIPYRIDAMOLE [Interacting]
     Active Substance: DIPYRIDAMOLE
     Dosage: 1 DF, QD
     Route: 065
  124. DIPYRIDAMOLE [Interacting]
     Active Substance: DIPYRIDAMOLE
     Dosage: 1 DF, Q12H
     Route: 065
  125. ALBUTEROL SULFATE [Interacting]
     Active Substance: ALBUTEROL SULFATE
     Indication: Chest pain
     Dosage: 100 MG, QD
     Route: 065
  126. ALBUTEROL SULFATE [Interacting]
     Active Substance: ALBUTEROL SULFATE
     Indication: Angina pectoris
     Dosage: 400 MG, Q6H
     Route: 065
  127. ALBUTEROL SULFATE [Interacting]
     Active Substance: ALBUTEROL SULFATE
     Indication: Constipation
     Dosage: 100 UG, QD
     Route: 065
  128. ALBUTEROL SULFATE [Interacting]
     Active Substance: ALBUTEROL SULFATE
     Indication: Hypertension
     Dosage: 200 MG, Q6H
     Route: 065
  129. ALBUTEROL SULFATE [Interacting]
     Active Substance: ALBUTEROL SULFATE
     Indication: Coronary artery disease
     Dosage: 200 UG, Q6H
     Route: 065
  130. ALBUTEROL SULFATE [Interacting]
     Active Substance: ALBUTEROL SULFATE
     Dosage: 100 MG, QD
     Route: 065
  131. ALBUTEROL SULFATE [Interacting]
     Active Substance: ALBUTEROL SULFATE
     Dosage: 400 MG, Q6H
     Route: 065
  132. ALBUTEROL SULFATE [Interacting]
     Active Substance: ALBUTEROL SULFATE
     Dosage: UNK
     Route: 065
  133. ALBUTEROL SULFATE [Interacting]
     Active Substance: ALBUTEROL SULFATE
     Dosage: 200 UG, Q6H
     Route: 065
  134. ALBUTEROL SULFATE [Interacting]
     Active Substance: ALBUTEROL SULFATE
     Dosage: 200 MG, Q6H
     Route: 065
  135. LEVOFLOXACIN [Interacting]
     Active Substance: LEVOFLOXACIN
     Indication: Urinary tract infection
     Dosage: 250 MG, QD
     Route: 065
  136. LEVOFLOXACIN [Interacting]
     Active Substance: LEVOFLOXACIN
     Dosage: 250 MG, Q12H
     Route: 065
  137. LEVOFLOXACIN [Interacting]
     Active Substance: LEVOFLOXACIN
     Dosage: UNK
     Route: 065
  138. ROSUVASTATIN CALCIUM [Interacting]
     Active Substance: ROSUVASTATIN CALCIUM
     Indication: Cerebrovascular accident
     Dosage: 20 MG, Q12H
     Route: 048
  139. ROSUVASTATIN CALCIUM [Interacting]
     Active Substance: ROSUVASTATIN CALCIUM
     Indication: Chronic obstructive pulmonary disease
     Dosage: 20 MG, QD
     Route: 065
  140. ROSUVASTATIN CALCIUM [Interacting]
     Active Substance: ROSUVASTATIN CALCIUM
     Indication: Coronary artery disease
     Dosage: 200 MG, Q12H
     Route: 065
  141. ROSUVASTATIN CALCIUM [Interacting]
     Active Substance: ROSUVASTATIN CALCIUM
     Indication: Insomnia
     Dosage: 20 MG, QOD
     Route: 065
  142. ROSUVASTATIN CALCIUM [Interacting]
     Active Substance: ROSUVASTATIN CALCIUM
     Indication: Hypertension
  143. ROSUVASTATIN CALCIUM [Interacting]
     Active Substance: ROSUVASTATIN CALCIUM
     Indication: Chest pain
  144. ROSUVASTATIN CALCIUM [Interacting]
     Active Substance: ROSUVASTATIN CALCIUM
     Indication: Angina pectoris
  145. CYCLOBENZAPRINE [Interacting]
     Active Substance: CYCLOBENZAPRINE
     Indication: Pain
     Dosage: 15 MG, Q8H
     Route: 065
  146. CYCLOBENZAPRINE [Interacting]
     Active Substance: CYCLOBENZAPRINE
     Indication: Seizure prophylaxis
     Dosage: 100 MG, Q12H
     Route: 065
  147. CYCLOBENZAPRINE [Interacting]
     Active Substance: CYCLOBENZAPRINE
     Indication: Fibromyalgia
     Dosage: 1.87 MG, QD
     Route: 065
  148. CYCLOBENZAPRINE [Interacting]
     Active Substance: CYCLOBENZAPRINE
     Indication: Seizure
     Dosage: 5 MG, Q8H
     Route: 065
  149. CYCLOBENZAPRINE [Interacting]
     Active Substance: CYCLOBENZAPRINE
     Dosage: 5 MG, Q12H
     Route: 065
  150. CYCLOBENZAPRINE [Interacting]
     Active Substance: CYCLOBENZAPRINE
     Dosage: 200 MG, Q12H
     Route: 065
  151. CYCLOBENZAPRINE [Interacting]
     Active Substance: CYCLOBENZAPRINE
     Dosage: UNK
     Route: 065
  152. CYCLOBENZAPRINE [Interacting]
     Active Substance: CYCLOBENZAPRINE
     Dosage: 200 MG, Q12H
     Route: 065
  153. CYCLOBENZAPRINE [Interacting]
     Active Substance: CYCLOBENZAPRINE
     Dosage: 1.87 MG
     Route: 065
  154. CYCLOBENZAPRINE [Interacting]
     Active Substance: CYCLOBENZAPRINE
     Dosage: 2 MG, QD
     Route: 065
  155. CYCLOBENZAPRINE [Interacting]
     Active Substance: CYCLOBENZAPRINE
     Dosage: 45 MG, QD
     Route: 065
  156. CYCLOBENZAPRINE [Interacting]
     Active Substance: CYCLOBENZAPRINE
     Dosage: UNK
     Route: 065
  157. CYCLOBENZAPRINE [Interacting]
     Active Substance: CYCLOBENZAPRINE
     Dosage: 100 MG, Q12H
     Route: 065
  158. CYCLOBENZAPRINE [Interacting]
     Active Substance: CYCLOBENZAPRINE
     Dosage: 5 MG, Q12H
     Route: 065
  159. CYCLOBENZAPRINE [Interacting]
     Active Substance: CYCLOBENZAPRINE
     Dosage: 1.87 MG, QD
     Route: 065
  160. CYCLOBENZAPRINE [Interacting]
     Active Substance: CYCLOBENZAPRINE
     Dosage: 5 MG, Q8H
     Route: 065
  161. CYCLOBENZAPRINE [Interacting]
     Active Substance: CYCLOBENZAPRINE
     Dosage: 0.63 MG
     Route: 065
  162. CYCLOBENZAPRINE [Interacting]
     Active Substance: CYCLOBENZAPRINE
     Dosage: 5 MG
     Route: 065
  163. CYCLOBENZAPRINE [Interacting]
     Active Substance: CYCLOBENZAPRINE
     Dosage: 5 MG
     Route: 065
  164. CYCLOBENZAPRINE [Interacting]
     Active Substance: CYCLOBENZAPRINE
     Dosage: 5 MG, Q8H
     Route: 065
  165. CYCLOBENZAPRINE [Interacting]
     Active Substance: CYCLOBENZAPRINE
     Dosage: 15 MG
     Route: 065
  166. CYCLOBENZAPRINE [Interacting]
     Active Substance: CYCLOBENZAPRINE
     Dosage: 15 MG, Q8H
     Route: 065
  167. NITROGLYCERIN [Interacting]
     Active Substance: NITROGLYCERIN
     Indication: Angina pectoris
     Dosage: 1 DF, QD
     Route: 065
  168. NITROGLYCERIN [Interacting]
     Active Substance: NITROGLYCERIN
     Indication: Coronary artery disease
     Dosage: 0.4 MG, QD
     Route: 061
  169. NITROGLYCERIN [Interacting]
     Active Substance: NITROGLYCERIN
     Indication: Chest pain
     Dosage: 0.4 DF, QD
     Route: 065
  170. NITROGLYCERIN [Interacting]
     Active Substance: NITROGLYCERIN
     Indication: Hypertension
     Dosage: 0.6 MG, QD
     Route: 061
  171. QUINAPRIL HYDROCHLORIDE [Interacting]
     Active Substance: QUINAPRIL HYDROCHLORIDE
     Indication: Hypertension
     Dosage: 40 MG, QD
     Route: 065
  172. QUINAPRIL HYDROCHLORIDE [Interacting]
     Active Substance: QUINAPRIL HYDROCHLORIDE
     Indication: Coronary artery disease
     Dosage: 20 MG, QD
     Route: 065
  173. QUINAPRIL HYDROCHLORIDE [Interacting]
     Active Substance: QUINAPRIL HYDROCHLORIDE
     Indication: Chest pain
     Dosage: 40 MG, QD
     Route: 065
  174. QUINAPRIL HYDROCHLORIDE [Interacting]
     Active Substance: QUINAPRIL HYDROCHLORIDE
     Indication: Angina pectoris
  175. ACEBUTOLOL HYDROCHLORIDE [Interacting]
     Active Substance: ACEBUTOLOL HYDROCHLORIDE
     Indication: Coronary artery disease
     Dosage: 400 MG, QD
     Route: 065
  176. ACEBUTOLOL HYDROCHLORIDE [Interacting]
     Active Substance: ACEBUTOLOL HYDROCHLORIDE
     Indication: Angina pectoris
     Dosage: 100 MG, QD
     Route: 065
  177. ACEBUTOLOL HYDROCHLORIDE [Interacting]
     Active Substance: ACEBUTOLOL HYDROCHLORIDE
     Indication: Hypertension
     Dosage: 100 MG, Q12H
     Route: 065
  178. ACEBUTOLOL HYDROCHLORIDE [Interacting]
     Active Substance: ACEBUTOLOL HYDROCHLORIDE
     Indication: Constipation
     Dosage: 400 MG, QW
     Route: 065
  179. ACEBUTOLOL HYDROCHLORIDE [Interacting]
     Active Substance: ACEBUTOLOL HYDROCHLORIDE
     Indication: Chest pain
     Dosage: 200 MG, BID
     Route: 065
  180. ACEBUTOLOL HYDROCHLORIDE [Interacting]
     Active Substance: ACEBUTOLOL HYDROCHLORIDE
     Dosage: 200 MG (5 TIMES A DAY)
     Route: 065
  181. ACEBUTOLOL HYDROCHLORIDE [Interacting]
     Active Substance: ACEBUTOLOL HYDROCHLORIDE
     Dosage: 200 MG, Q12H
     Route: 065
  182. ACEBUTOLOL HYDROCHLORIDE [Interacting]
     Active Substance: ACEBUTOLOL HYDROCHLORIDE
     Dosage: 200 MG, Q5W
     Route: 065
  183. ACEBUTOLOL HYDROCHLORIDE [Interacting]
     Active Substance: ACEBUTOLOL HYDROCHLORIDE
     Dosage: 100 MG, Q48H
     Route: 065
  184. ACEBUTOLOL HYDROCHLORIDE [Interacting]
     Active Substance: ACEBUTOLOL HYDROCHLORIDE
     Dosage: 100 MG, 5QD
     Route: 065
  185. ACEBUTOLOL HYDROCHLORIDE [Interacting]
     Active Substance: ACEBUTOLOL HYDROCHLORIDE
     Dosage: UNK
     Route: 065
  186. ACEBUTOLOL HYDROCHLORIDE [Interacting]
     Active Substance: ACEBUTOLOL HYDROCHLORIDE
     Dosage: 500 MG, QD
     Route: 065
  187. ACEBUTOLOL HYDROCHLORIDE [Interacting]
     Active Substance: ACEBUTOLOL HYDROCHLORIDE
     Dosage: 200 MG, BID
     Route: 065
  188. ACEBUTOLOL HYDROCHLORIDE [Interacting]
     Active Substance: ACEBUTOLOL HYDROCHLORIDE
     Dosage: 100 MG, Q2MO
     Route: 065
  189. ACEBUTOLOL HYDROCHLORIDE [Interacting]
     Active Substance: ACEBUTOLOL HYDROCHLORIDE
     Dosage: UNK
     Route: 065
  190. ACEBUTOLOL HYDROCHLORIDE [Interacting]
     Active Substance: ACEBUTOLOL HYDROCHLORIDE
     Dosage: 100 MG, QD
     Route: 065
  191. ACEBUTOLOL HYDROCHLORIDE [Interacting]
     Active Substance: ACEBUTOLOL HYDROCHLORIDE
     Dosage: 200 MG, BID
     Route: 065
  192. ACEBUTOLOL HYDROCHLORIDE [Interacting]
     Active Substance: ACEBUTOLOL HYDROCHLORIDE
     Dosage: 200 MG, BID
     Route: 065
  193. ACEBUTOLOL HYDROCHLORIDE [Interacting]
     Active Substance: ACEBUTOLOL HYDROCHLORIDE
     Dosage: 200 MG, BID
     Route: 065
  194. ACEBUTOLOL HYDROCHLORIDE [Interacting]
     Active Substance: ACEBUTOLOL HYDROCHLORIDE
     Dosage: 200 MG, BID
     Route: 065
  195. ACEBUTOLOL HYDROCHLORIDE [Interacting]
     Active Substance: ACEBUTOLOL HYDROCHLORIDE
     Dosage: 200 MG, BID
     Route: 065
  196. ACEBUTOLOL HYDROCHLORIDE [Interacting]
     Active Substance: ACEBUTOLOL HYDROCHLORIDE
     Dosage: 100 MG, QD
     Route: 065
  197. ACEBUTOLOL HYDROCHLORIDE [Interacting]
     Active Substance: ACEBUTOLOL HYDROCHLORIDE
     Dosage: 100 MG, BID
     Route: 065
  198. ACEBUTOLOL HYDROCHLORIDE [Interacting]
     Active Substance: ACEBUTOLOL HYDROCHLORIDE
     Dosage: 200 MG, Q12H
     Route: 065
  199. ACEBUTOLOL HYDROCHLORIDE [Interacting]
     Active Substance: ACEBUTOLOL HYDROCHLORIDE
     Dosage: 200 MG
     Route: 065
  200. ACEBUTOLOL HYDROCHLORIDE [Interacting]
     Active Substance: ACEBUTOLOL HYDROCHLORIDE
     Dosage: 200 MG
     Route: 065
  201. ACEBUTOLOL HYDROCHLORIDE [Interacting]
     Active Substance: ACEBUTOLOL HYDROCHLORIDE
     Dosage: 200 MG
     Route: 065
  202. ACEBUTOLOL HYDROCHLORIDE [Interacting]
     Active Substance: ACEBUTOLOL HYDROCHLORIDE
     Dosage: 200 MG
     Route: 065
  203. ACEBUTOLOL HYDROCHLORIDE [Interacting]
     Active Substance: ACEBUTOLOL HYDROCHLORIDE
     Dosage: 100 MG
     Route: 065
  204. ACEBUTOLOL HYDROCHLORIDE [Interacting]
     Active Substance: ACEBUTOLOL HYDROCHLORIDE
     Dosage: 200 MG, Q12H
     Route: 065
  205. ACEBUTOLOL HYDROCHLORIDE [Interacting]
     Active Substance: ACEBUTOLOL HYDROCHLORIDE
     Dosage: UNK
     Route: 065
  206. ACEBUTOLOL HYDROCHLORIDE [Interacting]
     Active Substance: ACEBUTOLOL HYDROCHLORIDE
     Dosage: 400 MG, Q12H
     Route: 065
  207. ACEBUTOLOL HYDROCHLORIDE [Interacting]
     Active Substance: ACEBUTOLOL HYDROCHLORIDE
     Dosage: 200 MG, Q12H
     Route: 065
  208. ACEBUTOLOL HYDROCHLORIDE [Interacting]
     Active Substance: ACEBUTOLOL HYDROCHLORIDE
     Dosage: 200 MG
     Route: 065
  209. ACEBUTOLOL HYDROCHLORIDE [Interacting]
     Active Substance: ACEBUTOLOL HYDROCHLORIDE
     Dosage: 100 MG, Q12H
     Route: 065
  210. ACEBUTOLOL HYDROCHLORIDE [Interacting]
     Active Substance: ACEBUTOLOL HYDROCHLORIDE
     Dosage: 100 MG
     Route: 065
  211. ACEBUTOLOL HYDROCHLORIDE [Interacting]
     Active Substance: ACEBUTOLOL HYDROCHLORIDE
     Dosage: 200 MG, Q5W
     Route: 065
  212. ACEBUTOLOL HYDROCHLORIDE [Interacting]
     Active Substance: ACEBUTOLOL HYDROCHLORIDE
     Dosage: 400 MG, QD
     Route: 065
  213. ACEBUTOLOL HYDROCHLORIDE [Interacting]
     Active Substance: ACEBUTOLOL HYDROCHLORIDE
     Dosage: 100 MG
     Route: 065
  214. ACEBUTOLOL HYDROCHLORIDE [Interacting]
     Active Substance: ACEBUTOLOL HYDROCHLORIDE
     Dosage: 400 MG, QW
     Route: 065
  215. ACEBUTOLOL HYDROCHLORIDE [Interacting]
     Active Substance: ACEBUTOLOL HYDROCHLORIDE
     Dosage: 100 MG
     Route: 065
  216. ACEBUTOLOL HYDROCHLORIDE [Interacting]
     Active Substance: ACEBUTOLOL HYDROCHLORIDE
     Dosage: 200 MG
     Route: 065
  217. ACEBUTOLOL HYDROCHLORIDE [Interacting]
     Active Substance: ACEBUTOLOL HYDROCHLORIDE
     Dosage: 100 MG
     Route: 065
  218. ACEBUTOLOL HYDROCHLORIDE [Interacting]
     Active Substance: ACEBUTOLOL HYDROCHLORIDE
     Dosage: 100 MG, QD
     Route: 065
  219. ACEBUTOLOL HYDROCHLORIDE [Interacting]
     Active Substance: ACEBUTOLOL HYDROCHLORIDE
     Dosage: 200 MG, QD
     Route: 065
  220. LACTULOSE [Interacting]
     Active Substance: LACTULOSE
     Indication: Constipation
     Dosage: 15 ML
     Route: 065
  221. LACTULOSE [Interacting]
     Active Substance: LACTULOSE
     Indication: Thyroid disorder
     Dosage: 15 MG, QD
     Route: 048
  222. LACTULOSE [Interacting]
     Active Substance: LACTULOSE
     Indication: Radioactive iodine therapy
     Dosage: UNK
     Route: 065
  223. DULCOLAX NOS [Interacting]
     Active Substance: BISACODYL OR DOCUSATE SODIUM
     Indication: Constipation
     Dosage: 2 DF, QD
     Route: 065
  224. DULCOLAX NOS [Interacting]
     Active Substance: BISACODYL OR DOCUSATE SODIUM
     Dosage: 1 DF, QD
     Route: 065
  225. TIOTROPIUM BROMIDE [Interacting]
     Active Substance: TIOTROPIUM BROMIDE
     Indication: Chronic obstructive pulmonary disease
     Dosage: 18 UG, QD
     Route: 048
  226. TIOTROPIUM BROMIDE [Interacting]
     Active Substance: TIOTROPIUM BROMIDE
     Dosage: 18 MG
     Route: 065
  227. QUININE [Interacting]
     Active Substance: QUININE
     Indication: Pain
     Dosage: UNK
     Route: 065
  228. AGGRENOX [Interacting]
     Active Substance: ASPIRIN\DIPYRIDAMOLE
     Indication: Cerebrovascular accident
     Dosage: 2 DF, QOD
     Route: 065
  229. AGGRENOX [Interacting]
     Active Substance: ASPIRIN\DIPYRIDAMOLE
     Dosage: 2 DF (TOTAL)
     Route: 065
  230. AGGRENOX [Interacting]
     Active Substance: ASPIRIN\DIPYRIDAMOLE
     Dosage: 1 DF, Q12H
     Route: 065
  231. AGGRENOX [Interacting]
     Active Substance: ASPIRIN\DIPYRIDAMOLE
     Dosage: 2 DOSAGE FORM
     Route: 065
  232. AGGRENOX [Interacting]
     Active Substance: ASPIRIN\DIPYRIDAMOLE
     Dosage: 1 DOSAGE FORM
     Route: 065
  233. AGGRENOX [Interacting]
     Active Substance: ASPIRIN\DIPYRIDAMOLE
     Dosage: 2 DOSAGE FORM
     Route: 065
  234. AGGRENOX [Interacting]
     Active Substance: ASPIRIN\DIPYRIDAMOLE
     Dosage: 1 DOSAGE FORM
     Route: 065
  235. AGGRENOX [Interacting]
     Active Substance: ASPIRIN\DIPYRIDAMOLE
     Dosage: 2 DOSAGE FORM
     Route: 065
  236. AGGRENOX [Interacting]
     Active Substance: ASPIRIN\DIPYRIDAMOLE
     Dosage: 2 DOSAGE FORM, QD
     Route: 065
  237. MAGNESIUM HYDROXIDE [Interacting]
     Active Substance: MAGNESIUM HYDROXIDE
     Indication: Constipation
     Dosage: 622 MG, QD
     Route: 065
  238. MAGNESIUM HYDROXIDE [Interacting]
     Active Substance: MAGNESIUM HYDROXIDE
     Dosage: 1 DF, QD
     Route: 065
  239. MAGNESIUM HYDROXIDE [Interacting]
     Active Substance: MAGNESIUM HYDROXIDE
     Dosage: 622 MG, Q12H
     Route: 065
  240. MAGNESIUM HYDROXIDE [Interacting]
     Active Substance: MAGNESIUM HYDROXIDE
     Dosage: 2 DF, QD
     Route: 065
  241. MAGNESIUM HYDROXIDE [Interacting]
     Active Substance: MAGNESIUM HYDROXIDE
     Dosage: UNK
     Route: 065
  242. DILTIAZEM HYDROCHLORIDE [Interacting]
     Active Substance: DILTIAZEM HYDROCHLORIDE
     Indication: Angina pectoris
     Dosage: 500 MG, QD
     Route: 065
  243. DILTIAZEM HYDROCHLORIDE [Interacting]
     Active Substance: DILTIAZEM HYDROCHLORIDE
     Indication: Chest pain
     Dosage: 360 MG, QD
     Route: 065
  244. DILTIAZEM HYDROCHLORIDE [Interacting]
     Active Substance: DILTIAZEM HYDROCHLORIDE
     Indication: Hypertension
     Dosage: UNK
     Route: 065
  245. DILTIAZEM HYDROCHLORIDE [Interacting]
     Active Substance: DILTIAZEM HYDROCHLORIDE
     Indication: Coronary artery disease
  246. CYCLOBENZAPRINE [Interacting]
     Active Substance: CYCLOBENZAPRINE
     Indication: Fibromyalgia
     Dosage: 5 MG, Q8H
     Route: 065
  247. CYCLOBENZAPRINE [Interacting]
     Active Substance: CYCLOBENZAPRINE
     Dosage: UNK
     Route: 065
  248. CALCIUM CARBONATE [Interacting]
     Active Substance: CALCIUM CARBONATE
     Indication: Product used for unknown indication
     Dosage: UNK
     Route: 065
  249. AMITRIPTYLINE HYDROCHLORIDE [Interacting]
     Active Substance: AMITRIPTYLINE HYDROCHLORIDE
     Indication: Insomnia
     Dosage: 75 MG, QD
     Route: 065
  250. AMITRIPTYLINE HYDROCHLORIDE [Interacting]
     Active Substance: AMITRIPTYLINE HYDROCHLORIDE
     Dosage: UNK
     Route: 065
  251. CARBAMAZEPINE [Interacting]
     Active Substance: CARBAMAZEPINE
     Indication: Prophylaxis
     Dosage: 200 MG, Q12H
     Route: 065
  252. CARBAMAZEPINE [Interacting]
     Active Substance: CARBAMAZEPINE
     Indication: Seizure
     Dosage: 200 MG, BID
     Route: 065
  253. CARBAMAZEPINE [Interacting]
     Active Substance: CARBAMAZEPINE
     Indication: Fibromyalgia
  254. PHENOLPHTHALEIN [Interacting]
     Active Substance: PHENOLPHTHALEIN
     Indication: Pain
     Dosage: UNK
     Route: 065
  255. PERSANTINE [Interacting]
     Active Substance: DIPYRIDAMOLE
     Indication: Cerebrovascular accident
     Dosage: 2 DF, QD
     Route: 065
  256. PERSANTINE [Interacting]
     Active Substance: DIPYRIDAMOLE
     Dosage: 1 DF, Q12H
     Route: 065
  257. PERSANTINE [Interacting]
     Active Substance: DIPYRIDAMOLE
     Dosage: 1 UNK
     Route: 065
  258. PERSANTINE [Interacting]
     Active Substance: DIPYRIDAMOLE
     Dosage: 1 DOSAGE FORM
     Route: 065
  259. PERSANTINE [Interacting]
     Active Substance: DIPYRIDAMOLE
     Dosage: 2 DOSAGE FORM
     Route: 065
  260. PERSANTINE [Interacting]
     Active Substance: DIPYRIDAMOLE
     Dosage: 1 DOSAGE FORM, Q12H
     Route: 065
  261. PERSANTINE [Interacting]
     Active Substance: DIPYRIDAMOLE
     Dosage: 2 DOSAGE FORM, QD
     Route: 065
  262. PERSANTINE [Interacting]
     Active Substance: DIPYRIDAMOLE
     Dosage: 1 DOSAGE FORM, QD
     Route: 065
  263. PERSANTINE [Interacting]
     Active Substance: DIPYRIDAMOLE
     Dosage: 0.5 MG
     Route: 065
  264. PERSANTINE [Interacting]
     Active Substance: DIPYRIDAMOLE
     Dosage: 1 DOSAGE FORM
     Route: 065
  265. SPIRIVA [Interacting]
     Active Substance: TIOTROPIUM BROMIDE MONOHYDRATE
     Indication: Chronic obstructive pulmonary disease
     Dosage: 18 UG, QD
     Route: 065
  266. SPIRIVA [Interacting]
     Active Substance: TIOTROPIUM BROMIDE MONOHYDRATE
     Dosage: 1 DF
     Route: 065
  267. NITROGLYCERIN [Interacting]
     Active Substance: NITROGLYCERIN
     Indication: Chest pain
     Dosage: 0.4 MG, QD
     Route: 065
  268. NITROGLYCERIN [Interacting]
     Active Substance: NITROGLYCERIN
     Indication: Coronary artery disease
     Dosage: 1 DF, QD
     Route: 065
  269. NITROGLYCERIN [Interacting]
     Active Substance: NITROGLYCERIN
     Indication: Angina pectoris
     Dosage: 0.6 MG, QD
     Route: 065
  270. NITROGLYCERIN [Interacting]
     Active Substance: NITROGLYCERIN
     Dosage: UNK
     Route: 065
  271. BISACODYL [Interacting]
     Active Substance: BISACODYL
     Indication: Constipation
     Dosage: 2 DF, QD
     Route: 065
  272. LEVOFLOXACIN HEMIHYDRATE [Interacting]
     Active Substance: LEVOFLOXACIN
     Indication: Urinary tract infection
     Dosage: UNK
     Route: 065
  273. POLYSORBATE 85 [Interacting]
     Active Substance: POLYSORBATE 85
     Indication: Insomnia
     Dosage: UNK
     Route: 065
  274. ACETAMINOPHEN [Interacting]
     Active Substance: ACETAMINOPHEN
     Indication: Pain
     Dosage: 650 MG
     Route: 065
  275. MORPHINE SULFATE [Interacting]
     Active Substance: MORPHINE SULFATE
     Indication: Fibromyalgia
     Dosage: 10 MG, QD
     Route: 065
  276. MORPHINE SULFATE [Interacting]
     Active Substance: MORPHINE SULFATE
     Indication: Pain
     Dosage: 100 MG, QD
     Route: 065
  277. AMITRIPTYLINE [Interacting]
     Active Substance: AMITRIPTYLINE
     Indication: Thyroid disorder
     Dosage: UNK
     Route: 065
  278. AMITRIPTYLINE [Interacting]
     Active Substance: AMITRIPTYLINE
     Indication: Radioactive iodine therapy
     Dosage: UNK
     Route: 065
  279. AMITRIPTYLINE [Interacting]
     Active Substance: AMITRIPTYLINE
     Indication: Prophylaxis
     Dosage: UNK
     Route: 065
  280. AMITRIPTYLINE [Interacting]
     Active Substance: AMITRIPTYLINE
     Indication: Pain
     Dosage: 75 MG, QD
     Route: 065
  281. AMITRIPTYLINE [Interacting]
     Active Substance: AMITRIPTYLINE
     Indication: Oedema
     Dosage: 50 MG, QD
     Route: 065
  282. AMITRIPTYLINE [Interacting]
     Active Substance: AMITRIPTYLINE
     Indication: Insomnia
     Dosage: UNK
     Route: 065
  283. AMITRIPTYLINE [Interacting]
     Active Substance: AMITRIPTYLINE
     Indication: Hypertension
     Dosage: UNK
     Route: 065
  284. AMITRIPTYLINE [Interacting]
     Active Substance: AMITRIPTYLINE
     Indication: Fibromyalgia
     Dosage: UNK
     Route: 065
  285. AMITRIPTYLINE [Interacting]
     Active Substance: AMITRIPTYLINE
     Indication: Duodenal ulcer
     Dosage: UNK
     Route: 065
  286. AMITRIPTYLINE [Interacting]
     Active Substance: AMITRIPTYLINE
     Indication: Dementia
     Dosage: UNK
     Route: 065
  287. AMITRIPTYLINE [Interacting]
     Active Substance: AMITRIPTYLINE
     Indication: Coronary artery disease
     Dosage: UNK
     Route: 065
  288. AMITRIPTYLINE [Interacting]
     Active Substance: AMITRIPTYLINE
     Indication: Constipation
     Dosage: UNK
     Route: 065
  289. AMITRIPTYLINE [Interacting]
     Active Substance: AMITRIPTYLINE
     Indication: Chest pain
     Dosage: UNK
     Route: 065
  290. AMITRIPTYLINE [Interacting]
     Active Substance: AMITRIPTYLINE
     Indication: Arthritis
     Dosage: UNK
     Route: 065
  291. AMITRIPTYLINE [Interacting]
     Active Substance: AMITRIPTYLINE
     Indication: Angina pectoris
     Dosage: UNK
     Route: 065
  292. AMITRIPTYLINE [Interacting]
     Active Substance: AMITRIPTYLINE
     Indication: Product used for unknown indication
     Dosage: UNK
     Route: 065
  293. QUINAPRIL [Interacting]
     Active Substance: QUINAPRIL
     Indication: Pain
     Dosage: 40 MG, QD
     Route: 065
  294. QUINAPRIL [Interacting]
     Active Substance: QUINAPRIL
     Indication: Coronary artery disease
     Dosage: 40 MG, TID
     Route: 065
  295. QUINAPRIL [Interacting]
     Active Substance: QUINAPRIL
     Indication: Hypertension
     Dosage: 20 MG, TID
     Route: 065
  296. GALANTAMINE [Interacting]
     Active Substance: GALANTAMINE
     Indication: Product used for unknown indication
     Dosage: UNK
     Route: 065
  297. ASPIRIN [Interacting]
     Active Substance: ASPIRIN
     Indication: Hypertension
     Dosage: UNK
     Route: 065
  298. ASPIRIN [Interacting]
     Active Substance: ASPIRIN
     Indication: Coronary artery disease
     Dosage: 1.0 DOSAGE FORMS
     Route: 065
  299. ASPIRIN [Interacting]
     Active Substance: ASPIRIN
     Indication: Angina pectoris
  300. ASPIRIN [Interacting]
     Active Substance: ASPIRIN
     Indication: Cerebrovascular accident
  301. CRANBERRY [Interacting]
     Active Substance: CRANBERRY
     Indication: Bladder disorder
     Dosage: 500 MG, Q8H
     Route: 065
  302. CRANBERRY [Interacting]
     Active Substance: CRANBERRY
     Dosage: 500 MG, Q8H
     Route: 065
  303. CYCLOBENZAPRINE HYDROCHLORIDE [Interacting]
     Active Substance: CYCLOBENZAPRINE HYDROCHLORIDE
     Indication: Pain
     Dosage: 15 MG, Q8H
     Route: 065
  304. CYCLOBENZAPRINE HYDROCHLORIDE [Interacting]
     Active Substance: CYCLOBENZAPRINE HYDROCHLORIDE
     Dosage: 200 MG, Q12H
     Route: 065
  305. CYCLOBENZAPRINE HYDROCHLORIDE [Interacting]
     Active Substance: CYCLOBENZAPRINE HYDROCHLORIDE
     Dosage: UNK
     Route: 048
  306. DILTIAZEM [Interacting]
     Active Substance: DILTIAZEM
     Indication: Angina pectoris
     Dosage: 360 MG, QD
     Route: 065
  307. DILTIAZEM [Interacting]
     Active Substance: DILTIAZEM
     Indication: Coronary artery disease
  308. DILTIAZEM [Interacting]
     Active Substance: DILTIAZEM
     Indication: Hypertension
  309. DILTIAZEM [Interacting]
     Active Substance: DILTIAZEM
     Indication: Chest pain
  310. CRESTOR [Interacting]
     Active Substance: ROSUVASTATIN CALCIUM
     Indication: Cerebrovascular accident
     Dosage: 40 MG
     Route: 065
  311. SALICYLAMIDE [Interacting]
     Active Substance: SALICYLAMIDE
     Indication: Pain
     Dosage: UNK
     Route: 065
  312. OXAZEPAM [Interacting]
     Active Substance: OXAZEPAM
     Indication: Insomnia
     Dosage: 15 MG, QD
     Route: 065
  313. OXAZEPAM [Interacting]
     Active Substance: OXAZEPAM
     Indication: Hypertension
     Dosage: UNK
     Route: 065
  314. OXAZEPAM [Interacting]
     Active Substance: OXAZEPAM
     Indication: Coronary artery disease
     Dosage: UNK
     Route: 065
  315. OXAZEPAM [Interacting]
     Active Substance: OXAZEPAM
     Dosage: 15 MG, QD
     Route: 065
  316. OXAZEPAM [Interacting]
     Active Substance: OXAZEPAM
     Dosage: 15 MG, QD
     Route: 065
  317. OXAZEPAM [Interacting]
     Active Substance: OXAZEPAM
     Dosage: 15 MG, QD
     Route: 065
  318. OXAZEPAM [Interacting]
     Active Substance: OXAZEPAM
     Dosage: UNK
     Route: 065
  319. GLUCOSAMINE SULFATE [Interacting]
     Active Substance: GLUCOSAMINE SULFATE
     Indication: Pain
     Dosage: 500 MG (2D)
     Route: 065
  320. GLUCOSAMINE SULFATE [Interacting]
     Active Substance: GLUCOSAMINE SULFATE
     Indication: Arthritis
     Dosage: UNK
     Route: 065
  321. GLUCOSAMINE SULFATE [Interacting]
     Active Substance: GLUCOSAMINE SULFATE
     Dosage: 500 MG
     Route: 065
  322. GLUCOSAMINE SULFATE [Interacting]
     Active Substance: GLUCOSAMINE SULFATE
     Dosage: UNK
     Route: 065
  323. GLUCOSAMINE SULFATE [Interacting]
     Active Substance: GLUCOSAMINE SULFATE
     Dosage: 500 MG
     Route: 065
  324. ALBUTEROL [Interacting]
     Active Substance: ALBUTEROL
     Indication: Chest pain
     Dosage: 400 MG, QD
     Route: 065
  325. ALBUTEROL [Interacting]
     Active Substance: ALBUTEROL
     Indication: Hypertension
     Dosage: 400 MG, Q6H
     Route: 065
  326. ALBUTEROL [Interacting]
     Active Substance: ALBUTEROL
     Dosage: 100 MG
     Route: 065
  327. ALBUTEROL [Interacting]
     Active Substance: ALBUTEROL
     Dosage: UNK
     Route: 065
  328. ROSUVASTATIN [Interacting]
     Active Substance: ROSUVASTATIN
     Indication: Hypertension
     Dosage: 20 MG, Q12H
     Route: 048
  329. ROSUVASTATIN [Interacting]
     Active Substance: ROSUVASTATIN
     Indication: Coronary artery disease
     Dosage: 200 MG, Q12H
     Route: 048
  330. ROSUVASTATIN [Interacting]
     Active Substance: ROSUVASTATIN
     Indication: Cerebrovascular accident
     Dosage: UNK
     Route: 058
  331. ROSUVASTATIN [Interacting]
     Active Substance: ROSUVASTATIN
     Indication: Chest pain
     Dosage: 20 MG
     Route: 065
  332. ROSUVASTATIN [Interacting]
     Active Substance: ROSUVASTATIN
     Indication: Angina pectoris
     Dosage: UNK
     Route: 065
  333. ROSUVASTATIN [Interacting]
     Active Substance: ROSUVASTATIN
     Indication: Product used for unknown indication
     Dosage: 20 MG, Q12H
     Route: 048
  334. ROSUVASTATIN [Interacting]
     Active Substance: ROSUVASTATIN
     Indication: Insomnia
     Dosage: 20 MG, Q12H
     Route: 065
  335. ROSUVASTATIN [Interacting]
     Active Substance: ROSUVASTATIN
     Indication: Chronic obstructive pulmonary disease
     Dosage: 200 MG, Q12H
     Route: 048
  336. ROSUVASTATIN [Interacting]
     Active Substance: ROSUVASTATIN
     Dosage: 20 MG
     Route: 065
  337. ROSUVASTATIN [Interacting]
     Active Substance: ROSUVASTATIN
     Dosage: UNK
     Route: 058
  338. ROSUVASTATIN [Interacting]
     Active Substance: ROSUVASTATIN
     Dosage: 200 MG
     Route: 065
  339. ROSUVASTATIN [Interacting]
     Active Substance: ROSUVASTATIN
     Dosage: 20 MG, Q12H
     Route: 048
  340. ROSUVASTATIN [Interacting]
     Active Substance: ROSUVASTATIN
     Dosage: UNK
     Route: 048
  341. ROSUVASTATIN [Interacting]
     Active Substance: ROSUVASTATIN
     Dosage: 20 MG
     Route: 048
  342. ROSUVASTATIN [Interacting]
     Active Substance: ROSUVASTATIN
     Dosage: 20 MG
     Route: 048
  343. ACETAMINOPHEN AND CODEINE [Interacting]
     Active Substance: ACETAMINOPHEN\CODEINE PHOSPHATE
     Indication: Product used for unknown indication
     Dosage: 650 MG
     Route: 065
  344. CHONDROITIN SULFATE (BOVINE)\GLUCOSAMINE SULFATE [Interacting]
     Active Substance: CHONDROITIN SULFATE (BOVINE)\GLUCOSAMINE SULFATE
     Indication: Product used for unknown indication
     Dosage: UNK
     Route: 065
  345. AMINOPHYLLINE [Interacting]
     Active Substance: AMINOPHYLLINE
     Indication: Coronary artery disease
     Dosage: UNK
     Route: 065
  346. AMINOPHYLLINE [Interacting]
     Active Substance: AMINOPHYLLINE
     Indication: Chest pain
     Dosage: 6 MG, QD
     Route: 061
  347. AMINOPHYLLINE [Interacting]
     Active Substance: AMINOPHYLLINE
     Indication: Angina pectoris
     Dosage: UNK
     Route: 065
  348. ACETAMINOPHEN\CAFFEINE [Interacting]
     Active Substance: ACETAMINOPHEN\CAFFEINE
     Indication: Pain
     Dosage: 600 MG, QD
     Route: 065
  349. ACETAMINOPHEN\CAFFEINE [Interacting]
     Active Substance: ACETAMINOPHEN\CAFFEINE
     Indication: Hypertension
     Dosage: 650 MG, QD
     Route: 065
  350. ACETAMINOPHEN\CAFFEINE [Interacting]
     Active Substance: ACETAMINOPHEN\CAFFEINE
     Indication: Coronary artery disease
     Dosage: 60 MG, QD
     Route: 065
  351. ACETAMINOPHEN\CAFFEINE [Interacting]
     Active Substance: ACETAMINOPHEN\CAFFEINE
     Indication: Chronic obstructive pulmonary disease
     Dosage: 50 MG, QD
     Route: 065
  352. ACETAMINOPHEN\CAFFEINE [Interacting]
     Active Substance: ACETAMINOPHEN\CAFFEINE
     Indication: Chest pain
  353. ACETAMINOPHEN\CAFFEINE [Interacting]
     Active Substance: ACETAMINOPHEN\CAFFEINE
     Indication: Cerebrovascular accident
  354. ACETAMINOPHEN\CAFFEINE [Interacting]
     Active Substance: ACETAMINOPHEN\CAFFEINE
     Indication: Angina pectoris
  355. PERPHENAZINE AND AMITRIPTYLINE HYDROCHLORIDE [Interacting]
     Active Substance: AMITRIPTYLINE HYDROCHLORIDE\PERPHENAZINE
     Indication: Insomnia
     Dosage: UNK
     Route: 065
  356. PERPHENAZINE AND AMITRIPTYLINE HYDROCHLORIDE [Interacting]
     Active Substance: AMITRIPTYLINE HYDROCHLORIDE\PERPHENAZINE
     Indication: Hypertension
     Dosage: 50 MG, QD
     Route: 065
  357. PERPHENAZINE AND AMITRIPTYLINE HYDROCHLORIDE [Interacting]
     Active Substance: AMITRIPTYLINE HYDROCHLORIDE\PERPHENAZINE
     Indication: Fibromyalgia
     Dosage: UNK
     Route: 065
  358. PERPHENAZINE AND AMITRIPTYLINE HYDROCHLORIDE [Interacting]
     Active Substance: AMITRIPTYLINE HYDROCHLORIDE\PERPHENAZINE
     Indication: Duodenal ulcer
     Dosage: UNK
     Route: 065
  359. PERPHENAZINE AND AMITRIPTYLINE HYDROCHLORIDE [Interacting]
     Active Substance: AMITRIPTYLINE HYDROCHLORIDE\PERPHENAZINE
     Indication: Dementia
     Dosage: UNK
     Route: 065
  360. PERPHENAZINE AND AMITRIPTYLINE HYDROCHLORIDE [Interacting]
     Active Substance: AMITRIPTYLINE HYDROCHLORIDE\PERPHENAZINE
     Indication: Coronary artery disease
     Dosage: UNK
     Route: 065
  361. PERPHENAZINE AND AMITRIPTYLINE HYDROCHLORIDE [Interacting]
     Active Substance: AMITRIPTYLINE HYDROCHLORIDE\PERPHENAZINE
     Indication: Constipation
     Dosage: UNK
     Route: 065
  362. PERPHENAZINE AND AMITRIPTYLINE HYDROCHLORIDE [Interacting]
     Active Substance: AMITRIPTYLINE HYDROCHLORIDE\PERPHENAZINE
     Indication: Chest pain
     Dosage: UNK
     Route: 065
  363. PERPHENAZINE AND AMITRIPTYLINE HYDROCHLORIDE [Interacting]
     Active Substance: AMITRIPTYLINE HYDROCHLORIDE\PERPHENAZINE
     Indication: Arthritis
     Dosage: UNK
     Route: 065
  364. PERPHENAZINE AND AMITRIPTYLINE HYDROCHLORIDE [Interacting]
     Active Substance: AMITRIPTYLINE HYDROCHLORIDE\PERPHENAZINE
     Indication: Angina pectoris
     Dosage: 75 MG, QD
     Route: 065
  365. AMLODIPINE MESYLATE [Interacting]
     Active Substance: AMLODIPINE MESYLATE
     Indication: Hypertension
     Dosage: UNK
     Route: 065
  366. AMLODIPINE MESYLATE [Interacting]
     Active Substance: AMLODIPINE MESYLATE
     Indication: Coronary artery disease
     Dosage: UNK
     Route: 065
  367. AMLODIPINE MESYLATE [Interacting]
     Active Substance: AMLODIPINE MESYLATE
     Indication: Angina pectoris
     Dosage: 5 MG, QD
     Route: 065
  368. ACETAMINOPHEN [Interacting]
     Active Substance: ACETAMINOPHEN
     Indication: Pain
     Dosage: 650 MG
     Route: 065
  369. SODIUM PICOSULFATE [Interacting]
     Active Substance: SODIUM PICOSULFATE
     Indication: Constipation
     Dosage: 2 DOSAGE FORM
     Route: 065
  370. ASCORBIC ACID [Interacting]
     Active Substance: ASCORBIC ACID
     Indication: Product used for unknown indication
     Dosage: 500 MG
     Route: 065
  371. GLYCERIN [Interacting]
     Active Substance: GLYCERIN
     Indication: Product used for unknown indication
     Dosage: UNK
     Route: 065
  372. CAFFEINE [Interacting]
     Active Substance: CAFFEINE
     Indication: Product used for unknown indication
     Dosage: UNK
     Route: 065
  373. CRANBERRY [Concomitant]
     Active Substance: CRANBERRY
     Indication: Bladder disorder
     Dosage: 500 MG, Q8H
     Route: 065
  374. ZINC [Concomitant]
     Active Substance: ZINC
     Indication: Product used for unknown indication
     Dosage: UNK
     Route: 065
  375. ASPIRIN [Concomitant]
     Active Substance: ASPIRIN
     Indication: Product used for unknown indication
     Dosage: UNK
     Route: 065
  376. ASCORBIC ACID [Concomitant]
     Active Substance: ASCORBIC ACID
     Indication: Product used for unknown indication
     Dosage: UNK
     Route: 065
  377. ASCORBIC ACID [Concomitant]
     Active Substance: ASCORBIC ACID
     Dosage: UNK
     Route: 065
  378. PSYLLIUM HUSK [Concomitant]
     Active Substance: PSYLLIUM HUSK
     Indication: Product used for unknown indication
     Dosage: UNK
     Route: 065
  379. FIBER [Concomitant]
     Active Substance: PSYLLIUM HUSK
     Indication: Product used for unknown indication
     Dosage: UNK
     Route: 065
  380. POTASSIUM SORBATE [Concomitant]
     Active Substance: POTASSIUM SORBATE
     Indication: Product used for unknown indication
     Dosage: UNK
     Route: 065
  381. PYROPHOSPHORIC ACID [Concomitant]
     Active Substance: PYROPHOSPHORIC ACID
     Indication: Product used for unknown indication
     Dosage: UNK
     Route: 065
  382. CALCIUM POLYCARBOPHIL [Concomitant]
     Active Substance: CALCIUM POLYCARBOPHIL
     Indication: Product used for unknown indication
     Dosage: UNK
     Route: 065

REACTIONS (16)
  - Blood calcium decreased [Recovered/Resolved]
  - Sedation [Recovered/Resolved]
  - Cognitive disorder [Recovered/Resolved]
  - Balance disorder [Recovered/Resolved]
  - Pain [Recovered/Resolved]
  - Mobility decreased [Recovered/Resolved]
  - Toxicity to various agents [Recovered/Resolved]
  - Fall [Recovered/Resolved]
  - Sedation complication [Recovered/Resolved]
  - Creatinine renal clearance decreased [Recovered/Resolved]
  - Orthostatic hypotension [Recovered/Resolved]
  - Hypotension [Recovered/Resolved]
  - Constipation [Recovered/Resolved]
  - Dyspnoea [Recovered/Resolved]
  - Drug interaction [Recovered/Resolved]
  - Depressed level of consciousness [Recovered/Resolved]
